FAERS Safety Report 10437826 (Version 1)
Quarter: 2014Q3

REPORT INFORMATION
  Report Type: Spontaneous
  Country: US (occurrence: US)
  Receive Date: 20140908
  Receipt Date: 20140908
  Transmission Date: 20150326
  Serious: No
  Sender: FDA-Public Use
  Company Number: US-BRISTOL-MYERS SQUIBB COMPANY-20509972

PATIENT
  Sex: Male
  Weight: 48.52 kg

DRUGS (3)
  1. ABILIFY [Suspect]
     Active Substance: ARIPIPRAZOLE
     Indication: DEPRESSION
     Dosage: FIRST INCREASED TO 3MG THEN TO 7MG
     Dates: start: 2013
  2. ABILIFY [Suspect]
     Active Substance: ARIPIPRAZOLE
     Indication: AGGRESSION
     Dosage: FIRST INCREASED TO 3MG THEN TO 7MG
     Dates: start: 2013
  3. ABILIFY [Suspect]
     Active Substance: ARIPIPRAZOLE
     Indication: MOOD SWINGS
     Dosage: FIRST INCREASED TO 3MG THEN TO 7MG
     Dates: start: 2013

REACTIONS (3)
  - Drug ineffective [Unknown]
  - Off label use [Unknown]
  - Wrong technique in drug usage process [Unknown]
